FAERS Safety Report 7387695-8 (Version None)
Quarter: 2011Q1

REPORT INFORMATION
  Report Type: 
  Country: None (occurrence: None)
  Receive Date: 20110324
  Receipt Date: 20110308
  Transmission Date: 20110831
  Serious: Yes (Death, Hospitalization, Other)
  Sender: FDA-Public Use
  Company Number: FK201100435

PATIENT
  Age: 39 Year
  Sex: Male

DRUGS (3)
  1. CARBOPLATIN [Suspect]
     Indication: TESTICULAR TERATOMA BENIGN
     Dosage: INTRAVENOUS (NOT OTHERWISE SPECIFIED)
     Route: 042
  2. ETOPOSIDE [Suspect]
     Indication: TESTICULAR TERATOMA BENIGN
     Dosage: INTRAVENOUS (NOT OTHERWISE SPECIFIED)
     Route: 042
  3. IFOSFAMIDE [Suspect]
     Indication: TESTICULAR TERATOMA BENIGN
     Dosage: INTRAVENOUS (NOT OTHERWISE SPECIFIED)
     Route: 042

REACTIONS (7)
  - HAEMORRHAGE INTRACRANIAL [None]
  - HAEMODIALYSIS [None]
  - COAGULOPATHY [None]
  - STEM CELL TRANSPLANT [None]
  - HYPERTENSION [None]
  - RENAL FAILURE [None]
  - THROMBOCYTOPENIA [None]
